FAERS Safety Report 15057097 (Version 1)
Quarter: 2018Q2

REPORT INFORMATION
  Report Type: Spontaneous
  Country: US (occurrence: US)
  Receive Date: 20180604
  Receipt Date: 20180604
  Transmission Date: 20180711
  Serious: Yes (Hospitalization)
  Sender: FDA-Public Use
  Company Number: None

PATIENT

DRUGS (4)
  1. MYCOPHENOLATE MOF TAB 500MG [Suspect]
     Active Substance: MYCOPHENOLATE MOFETIL
  2. JADENU [Concomitant]
     Active Substance: DEFERASIROX
  3. JAKAFI [Concomitant]
     Active Substance: RUXOLITINIB
  4. SIROLIMUS. [Concomitant]
     Active Substance: SIROLIMUS

REACTIONS (2)
  - Influenza [None]
  - Infection [None]

NARRATIVE: CASE EVENT DATE: 20180115
